FAERS Safety Report 5201452-X (Version None)
Quarter: 2007Q1

REPORT INFORMATION
  Report Type: 
  Country: None (occurrence: None)
  Receive Date: 20070108
  Receipt Date: 20070102
  Transmission Date: 20070707
  Serious: Yes (Hospitalization)
  Sender: FDA-Public Use
  Company Number: US-SANOFI-SYNTHELABO-A03200700007

PATIENT
  Sex: Female

DRUGS (3)
  1. NEXIUM [Concomitant]
     Dosage: UNK
     Route: 048
  2. ATACAND [Concomitant]
     Dosage: UNK
     Route: 048
  3. PLAVIX [Suspect]
     Indication: THROMBOSIS PROPHYLAXIS
     Route: 048
     Dates: start: 20020101, end: 20030101

REACTIONS (2)
  - LOSS OF CONSCIOUSNESS [None]
  - PULMONARY EMBOLISM [None]
